FAERS Safety Report 5765670-4 (Version None)
Quarter: 2008Q2

REPORT INFORMATION
  Report Type: 
  Country: None (occurrence: None)
  Receive Date: 20080604
  Receipt Date: 20080123
  Transmission Date: 20081010
  Serious: Yes (Other)
  Sender: FDA-Public Use
  Company Number: 543330

PATIENT
  Age: 82 Year
  Sex: Female

DRUGS (1)
  1. LARIAM [Suspect]
     Indication: DRUG USE FOR UNKNOWN INDICATION
     Dosage: 250 MG DAILY

REACTIONS (8)
  - AGITATION [None]
  - ATAXIA [None]
  - CONFUSIONAL STATE [None]
  - DEAFNESS [None]
  - DIZZINESS [None]
  - MEDICATION ERROR [None]
  - OVERDOSE [None]
  - SPEECH DISORDER [None]
